FAERS Safety Report 15474483 (Version 2)
Quarter: 2018Q4

REPORT INFORMATION
  Report Type: Spontaneous
  Country: US (occurrence: US)
  Receive Date: 20181008
  Receipt Date: 20181012
  Transmission Date: 20190205
  Serious: No
  Sender: FDA-Public Use
  Company Number: US-SUNOVION-2018SUN003735

PATIENT
  Sex: Male
  Weight: 99.77 kg

DRUGS (2)
  1. LONHALA MAGNAIR [Suspect]
     Active Substance: GLYCOPYRROLATE
     Indication: CHRONIC OBSTRUCTIVE PULMONARY DISEASE
     Dosage: 25 ?G/1 ML, BID (MORNING AND EVENING)
     Route: 055
  2. OXYGEN. [Concomitant]
     Active Substance: OXYGEN
     Dosage: UNKNOWN
     Route: 065

REACTIONS (5)
  - Oxygen saturation decreased [Unknown]
  - Productive cough [Recovering/Resolving]
  - Dyspnoea [Unknown]
  - Cough [Recovering/Resolving]
  - Product dose omission [Unknown]
